FAERS Safety Report 8881559 (Version 2)
Quarter: 2013Q3

REPORT INFORMATION
  Report Type: Spontaneous
  Country: US (occurrence: US)
  Receive Date: 20120502
  Receipt Date: 20130802
  Transmission Date: 20140515
  Serious: Yes (Death, Hospitalization, Other)
  Sender: FDA-Public Use
  Company Number: PHHY2011US14448

PATIENT
  Sex: Female

DRUGS (1)
  1. MYFORTIC [Suspect]
     Dosage: 180 MG, BID

REACTIONS (4)
  - Death [Fatal]
  - Abdominal infection [Unknown]
  - Cardiac infection [Unknown]
  - Renal disorder [Unknown]
